FAERS Safety Report 16990925 (Version 1)
Quarter: 2019Q4

REPORT INFORMATION
  Report Type: Spontaneous
  Country: US (occurrence: US)
  Receive Date: 20190920
  Receipt Date: 20190920
  Transmission Date: 20200122
  Serious: Yes (Hospitalization)
  Sender: FDA-Public Use
  Company Number: None

PATIENT
  Age: 62 Year
  Sex: Female

DRUGS (22)
  1. LANTUS [Concomitant]
     Active Substance: INSULIN GLARGINE
  2. SAKENDA [Concomitant]
  3. XARELTO [Concomitant]
     Active Substance: RIVAROXABAN
  4. LABETALOL [Concomitant]
     Active Substance: LABETALOL\LABETALOL HYDROCHLORIDE
  5. TORSEMIDE. [Concomitant]
     Active Substance: TORSEMIDE
  6. LANCETS [Concomitant]
     Active Substance: DEVICE
  7. METOPROLOL. [Concomitant]
     Active Substance: METOPROLOL
  8. ROPINIROLE. [Concomitant]
     Active Substance: ROPINIROLE
  9. ATORVASTATIN [Concomitant]
     Active Substance: ATORVASTATIN
  10. CONTOUR [Concomitant]
  11. CALCITRIOL. [Concomitant]
     Active Substance: CALCITRIOL
  12. SPIRONOLACTONE. [Concomitant]
     Active Substance: SPIRONOLACTONE
  13. FUROSEMIDE. [Concomitant]
     Active Substance: FUROSEMIDE
  14. ALLOPURINOL. [Concomitant]
     Active Substance: ALLOPURINOL
  15. AMITRIPTYLIN [Concomitant]
     Active Substance: AMITRIPTYLINE
  16. NITROLET [Concomitant]
  17. NOVOLOG [Concomitant]
     Active Substance: INSULIN ASPART
  18. AMLDOPINE [Concomitant]
  19. ENBREL [Suspect]
     Active Substance: ETANERCEPT
     Indication: PSORIATIC ARTHROPATHY
     Route: 058
     Dates: start: 2019, end: 20190920
  20. AMLODIPINE/VALSARTAN [Concomitant]
     Active Substance: AMLODIPINE\VALSARTAN
  21. LOSARTAN. [Concomitant]
     Active Substance: LOSARTAN
  22. ROSUVASTATIN. [Concomitant]
     Active Substance: ROSUVASTATIN

REACTIONS (2)
  - Cardiac failure congestive [None]
  - Condition aggravated [None]

NARRATIVE: CASE EVENT DATE: 20190715
